FAERS Safety Report 6409859-X (Version None)
Quarter: 2009Q4

REPORT INFORMATION
  Report Type: 
  Country: None (occurrence: None)
  Receive Date: 20091022
  Receipt Date: 20091015
  Transmission Date: 20100525
  Serious: Yes (Other)
  Sender: FDA-Public Use
  Company Number: PT-JNJFOC-20091005095

PATIENT
  Age: 56 Year
  Sex: Male
  Weight: 80 kg

DRUGS (1)
  1. TOPAMAX [Suspect]
     Indication: NEURALGIA
     Route: 048

REACTIONS (4)
  - ANGLE CLOSURE GLAUCOMA [None]
  - EYE PAIN [None]
  - OFF LABEL USE [None]
  - TUNNEL VISION [None]
